FAERS Safety Report 4942229-X (Version None)
Quarter: 2006Q1

REPORT INFORMATION
  Report Type: 
  Country: None (occurrence: None)
  Receive Date: 20060313
  Receipt Date: 20050921
  Transmission Date: 20060701
  Serious: No
  Sender: FDA-Public Use
  Company Number: US-GLAXOSMITHKLINE-A0575150A

PATIENT
  Age: 25 Year
  Sex: Female

DRUGS (1)
  1. NICORETTE (MINT) [Suspect]
     Dates: start: 20050917, end: 20050920

REACTIONS (2)
  - DYSGEUSIA [None]
  - STOMACH DISCOMFORT [None]
